FAERS Safety Report 6175371-9 (Version None)
Quarter: 2009Q2

REPORT INFORMATION
  Report Type: 
  Country: None (occurrence: None)
  Receive Date: 20090430
  Receipt Date: 20090424
  Transmission Date: 20091009
  Serious: Yes (Other)
  Sender: FDA-Public Use
  Company Number: CA-MERCK-0903CAN00102

PATIENT
  Age: 61 Year
  Sex: Male
  Weight: 94 kg

DRUGS (7)
  1. COZAAR [Suspect]
     Indication: ESSENTIAL HYPERTENSION
     Route: 048
     Dates: start: 20081219, end: 20090127
  2. COZAAR [Suspect]
     Route: 048
     Dates: start: 20090128, end: 20090323
  3. COZAAR [Suspect]
     Route: 048
     Dates: start: 20090407
  4. ATORVASTATIN CALCIUM [Concomitant]
     Indication: BLOOD CHOLESTEROL INCREASED
     Route: 065
     Dates: start: 20090108
  5. ASPIRIN [Concomitant]
     Indication: CEREBROVASCULAR ACCIDENT PROPHYLAXIS
     Route: 065
     Dates: start: 20090108
  6. LANSOPRAZOLE [Concomitant]
     Indication: GASTROOESOPHAGEAL REFLUX DISEASE
     Route: 065
     Dates: start: 20090108
  7. PNEUMOCOCCAL 23V POLYSACCHARIDE VACCINE [Concomitant]
     Indication: PROPHYLAXIS
     Route: 051
     Dates: start: 20090407

REACTIONS (4)
  - C-REACTIVE PROTEIN ABNORMAL [None]
  - NEPHROLITHIASIS [None]
  - RENAL CYST [None]
  - TYPE 2 DIABETES MELLITUS [None]
